FAERS Safety Report 10332154 (Version 1)
Quarter: 2014Q3

REPORT INFORMATION
  Report Type: Spontaneous
  Country: US (occurrence: US)
  Receive Date: 20140722
  Receipt Date: 20140722
  Transmission Date: 20150326
  Serious: Yes (Hospitalization, Other)
  Sender: FDA-Public Use
  Company Number: US-PFIZER INC-2014200573

PATIENT
  Age: 68 Year
  Sex: Male

DRUGS (1)
  1. INLYTA [Suspect]
     Active Substance: AXITINIB
     Indication: RENAL CANCER
     Dosage: 4 MG, 2X/DAY
     Dates: start: 20131003

REACTIONS (4)
  - Myocardial infarction [Unknown]
  - Disease progression [Unknown]
  - Pulmonary embolism [Unknown]
  - Renal cancer [Unknown]

NARRATIVE: CASE EVENT DATE: 20140706
